FAERS Safety Report 13219849 (Version 1)
Quarter: 2017Q1

REPORT INFORMATION
  Report Type: Other
  Country: US (occurrence: US)
  Receive Date: 20170210
  Receipt Date: 20170210
  Transmission Date: 20170428
  Serious: No
  Sender: FDA-Public Use
  Company Number: US-ACORDA-ACO_127585_2016

PATIENT
  Age: 58 Year
  Sex: Female
  Weight: 47.62 kg

DRUGS (2)
  1. AMPYRA [Suspect]
     Active Substance: DALFAMPRIDINE
     Indication: GAIT DISTURBANCE
     Dosage: 10 MG, Q 12 HRS
     Route: 048
     Dates: start: 2015
  2. AUBAGIO [Suspect]
     Active Substance: TERIFLUNOMIDE
     Indication: MULTIPLE SCLEROSIS
     Dosage: UNK
     Route: 065

REACTIONS (12)
  - Fall [Unknown]
  - Weight decreased [Unknown]
  - Therapy cessation [Unknown]
  - Decreased appetite [Unknown]
  - Asthenia [Unknown]
  - Condition aggravated [Not Recovered/Not Resolved]
  - Bedridden [Unknown]
  - Fatigue [Unknown]
  - General physical health deterioration [Not Recovered/Not Resolved]
  - Walking aid user [Not Recovered/Not Resolved]
  - Tremor [Unknown]
  - Multiple sclerosis relapse [Unknown]

NARRATIVE: CASE EVENT DATE: 201603
